FAERS Safety Report 4766512-6 (Version None)
Quarter: 2005Q3

REPORT INFORMATION
  Report Type: 
  Country: None (occurrence: None)
  Receive Date: 20050909
  Receipt Date: 20050830
  Transmission Date: 20060218
  Serious: Yes (Other)
  Sender: FDA-Public Use
  Company Number: 2005122475

PATIENT
  Age: 63 Year
  Sex: Female

DRUGS (4)
  1. AROMASIN [Suspect]
     Indication: BREAST CANCER
     Dosage: (25 MG), ORAL
     Route: 048
     Dates: start: 20050502
  2. ASPIRIN [Concomitant]
  3. FENOFIBRATE [Concomitant]
  4. VASOTEC [Concomitant]

REACTIONS (2)
  - HAEMORRHAGE [None]
  - NIPPLE DISORDER [None]
